FAERS Safety Report 5772968-2 (Version None)
Quarter: 2008Q2

REPORT INFORMATION
  Report Type: 
  Country: None (occurrence: None)
  Receive Date: 20080613
  Receipt Date: 20080602
  Transmission Date: 20081010
  Serious: Yes (Other)
  Sender: FDA-Public Use
  Company Number: US-PFIZER INC-2008047305

PATIENT
  Sex: Male
  Weight: 56.7 kg

DRUGS (2)
  1. DILANTIN [Suspect]
     Indication: GRAND MAL CONVULSION
     Route: 048
  2. PHENYTOIN [Suspect]

REACTIONS (8)
  - ABNORMAL BEHAVIOUR [None]
  - ATAXIA [None]
  - DYSSTASIA [None]
  - DYSTONIA [None]
  - FALL [None]
  - HYPOTONIA [None]
  - LETHARGY [None]
  - MALABSORPTION [None]
